FAERS Safety Report 7606353-5 (Version None)
Quarter: 2011Q3

REPORT INFORMATION
  Report Type: 
  Country: None (occurrence: None)
  Receive Date: 20110713
  Receipt Date: 20110711
  Transmission Date: 20111222
  Serious: Yes (Other)
  Sender: FDA-Public Use
  Company Number: GB-EISAI INC-E2020-09361-SPO-GB

PATIENT
  Age: 84 Year
  Sex: Female

DRUGS (8)
  1. ASPIRIN [Concomitant]
  2. SALBUTAMOL INHALER [Concomitant]
  3. AMLODIPINE [Concomitant]
  4. FLUTICASONE PROPIONATE [Concomitant]
  5. ARICEPT [Suspect]
     Dosage: UNKNOWN
     Route: 048
  6. SALMETEROL [Concomitant]
  7. LISINOPRIL [Concomitant]
  8. LANSOPRAZOLE [Concomitant]

REACTIONS (1)
  - LINEAR IGA DISEASE [None]
